FAERS Safety Report 8238360-6 (Version None)
Quarter: 2012Q1

REPORT INFORMATION
  Report Type: 
  Country: None (occurrence: None)
  Receive Date: 20120327
  Receipt Date: 20120316
  Transmission Date: 20120608
  Serious: Yes (Other)
  Sender: FDA-Public Use
  Company Number: US-AMGEN-USASP2011065639

PATIENT
  Age: 84 Year
  Sex: Male
  Weight: 70 kg

DRUGS (88)
  1. EPOGEN [Suspect]
     Dosage: 10000 UNIT, 3 TIMES/WK
     Dates: start: 20080911, end: 20081009
  2. FERRLECIT [Concomitant]
     Dosage: 125 MG, Q2MO
     Dates: start: 20090113, end: 20090630
  3. REGLAN [Concomitant]
     Indication: NAUSEA
     Dosage: 10 MG, Q6H
     Dates: start: 20120303
  4. VITAMIN C                          /00008001/ [Concomitant]
     Dosage: 500 MG, QD
     Dates: start: 20120303
  5. ENGERIX-B [Concomitant]
     Dosage: 40 MUG, UNK
     Route: 030
     Dates: start: 20090622, end: 20090623
  6. ENGERIX-B [Concomitant]
     Dosage: UNK
     Route: 030
     Dates: start: 20080227, end: 20080228
  7. RENA-VITE [Concomitant]
     Dosage: UNK
     Route: 048
     Dates: start: 20080128
  8. CIPRO [Concomitant]
     Dosage: 500 MG, QD
     Route: 048
     Dates: start: 20090413, end: 20090420
  9. ARANESP [Suspect]
     Indication: RENAL FAILURE CHRONIC
     Dosage: 300 MUG, QWK
     Route: 058
     Dates: start: 20111130, end: 20111130
  10. EPOGEN [Suspect]
     Dosage: 30000 UNIT, 3 TIMES/WK
     Route: 042
     Dates: start: 20090604, end: 20090711
  11. EPOGEN [Suspect]
     Dosage: 22000 UNIT, 3 TIMES/WK
     Dates: start: 20090305, end: 20090409
  12. HECTOROL [Concomitant]
     Dosage: 2 MUG, Q3WK
     Dates: start: 20120123, end: 20120306
  13. HECTOROL [Concomitant]
     Dosage: 0.5 MUG, QWK
     Dates: start: 20081016, end: 20090605
  14. FERRLECIT [Concomitant]
     Dosage: 125 MG, UNK
     Dates: start: 20080715, end: 20081009
  15. FOSRENOL [Concomitant]
     Dosage: UNK
     Route: 048
     Dates: start: 20090608, end: 20090608
  16. TYLENOL (CAPLET) [Concomitant]
     Dosage: 650 MG, PRN
     Route: 048
     Dates: start: 20080128, end: 20080221
  17. SODIUM CHLORIDE [Concomitant]
     Dosage: 500 ML, PRN
     Route: 042
     Dates: start: 20080201, end: 20080521
  18. ENGERIX-B [Concomitant]
     Dosage: UNK
     Route: 030
     Dates: start: 20080423, end: 20080424
  19. METOPROLOL SUCCINATE [Concomitant]
     Dosage: 12.5 MG, BID
     Dates: start: 20080128, end: 20080923
  20. VANCOCIN HYDROCHLORIDE [Concomitant]
     Dosage: 125 MG, UNK
     Dates: start: 20080521, end: 20080602
  21. LEVAQUIN [Concomitant]
     Dosage: 250 MG, QD
     Route: 048
  22. EPOGEN [Suspect]
     Dosage: 14300 UNIT, 3 TIMES/WK
     Route: 042
     Dates: start: 20120107
  23. HECTOROL [Concomitant]
     Indication: HYPERPARATHYROIDISM SECONDARY
     Dosage: 1 MUG, Q3WK
     Route: 042
     Dates: start: 20120306, end: 20120316
  24. VENOFER [Concomitant]
     Dosage: 100 MG, Q2MO
     Dates: start: 20090630, end: 20090711
  25. ENGERIX-B [Concomitant]
     Dosage: UNK
     Route: 030
     Dates: start: 20080728, end: 20080729
  26. ENGERIX-B [Concomitant]
     Dosage: UNK
     Route: 030
     Dates: start: 20080328, end: 20080329
  27. ZEMPLAR [Concomitant]
     Dosage: 3 MUG, 3 TIMES/WK
     Route: 042
     Dates: start: 20080131, end: 20080424
  28. VANCOCIN HYDROCHLORIDE [Concomitant]
     Dosage: 125 MG, UNK
     Dates: start: 20080613, end: 20080709
  29. VANTIN [Concomitant]
     Dosage: 100 MG, BID
     Dates: start: 20080521, end: 20080709
  30. EPOGEN [Suspect]
     Dosage: 20000 UNIT, 3 TIMES/WK
     Route: 042
     Dates: start: 20090711, end: 20090711
  31. EPOGEN [Suspect]
     Dosage: 28000 UNIT, 3 TIMES/WK
     Route: 042
     Dates: start: 20090507, end: 20090604
  32. FERRLECIT [Concomitant]
     Dosage: 125 MG, Q3WK
     Route: 042
     Dates: start: 20111219
  33. FERRLECIT [Concomitant]
     Dosage: 125 MG, Q3WK
     Route: 042
     Dates: start: 20111205, end: 20111224
  34. FERRLECIT [Concomitant]
     Dosage: 125 MG, QWK
     Route: 042
     Dates: start: 20111202, end: 20111205
  35. FERRLECIT [Concomitant]
     Dosage: 125 MG, QWK
     Route: 042
     Dates: start: 20080227, end: 20080715
  36. FOSRENOL [Concomitant]
     Dosage: 1000 MG, TID
     Route: 048
     Dates: start: 20090303, end: 20090511
  37. BENADRYL [Concomitant]
     Dosage: 25 MG, PRN
     Route: 042
     Dates: start: 20080128
  38. TYLENOL (CAPLET) [Concomitant]
     Indication: PAIN
     Dosage: 650 MG, Q4H
     Dates: start: 20120303
  39. ASPIRIN [Concomitant]
     Dosage: 80 MG, QD
     Dates: start: 20080128
  40. DEXTROSE [Concomitant]
     Dosage: 50 %, PRN
     Route: 042
     Dates: start: 20080128
  41. ENGERIX-B [Concomitant]
     Dosage: 40 MUG, UNK
     Dates: start: 20090724, end: 20090725
  42. ERGOCALCIFEROL [Concomitant]
     Dosage: 50000 UNIT, QMO
     Route: 048
     Dates: start: 20090720, end: 20100120
  43. ERGOCALCIFEROL [Concomitant]
     Dosage: 50000 UNIT, Q4WK
     Route: 048
     Dates: start: 20090113, end: 20090720
  44. VANCOMYCIN HCL [Concomitant]
     Dosage: 1 G, UNK
     Route: 042
     Dates: start: 20080707, end: 20080708
  45. INFLUENZA VIRUS VACCINE [Concomitant]
     Dosage: 5 ML, UNK
     Route: 030
     Dates: start: 20081008, end: 20081009
  46. TUBERCULIN NOS [Concomitant]
     Dosage: 01 UNK, UNK
     Route: 023
     Dates: start: 20081215, end: 20081229
  47. EPOGEN [Suspect]
     Dosage: 15000 UNIT, 3 TIMES/WK
     Dates: start: 20081009, end: 20081113
  48. EPOGEN [Suspect]
     Dosage: 12000 UNIT, 3 TIMES/WK
     Dates: start: 20080812, end: 20080911
  49. PRILOSEC [Concomitant]
     Dosage: 20 MG, QD
     Dates: start: 20120303
  50. VENOFER [Concomitant]
     Indication: IRON DEFICIENCY ANAEMIA
     Dosage: 100 MG, Q3WK
     Route: 042
     Dates: start: 20120109
  51. CATHFLO ACTIVASE [Concomitant]
     Dosage: UNK
     Dates: start: 20080125, end: 20080126
  52. EPOGEN [Suspect]
     Dosage: 19000 UNIT, 3 TIMES/WK
     Route: 042
     Dates: start: 20081204, end: 20090113
  53. HECTOROL [Concomitant]
     Dosage: 3 MUG, 3 TIMES/WK
     Route: 042
     Dates: start: 20111114, end: 20120123
  54. FERRLECIT [Concomitant]
     Dosage: 125 MG, Q3WK
     Route: 042
     Dates: start: 20111224, end: 20120103
  55. FOSRENOL [Concomitant]
     Dosage: 500 MG, BID
     Route: 048
     Dates: start: 20090511, end: 20090608
  56. ENGERIX-B [Concomitant]
     Dosage: UNK
     Route: 030
     Dates: start: 20080128, end: 20080129
  57. FLAGYL [Concomitant]
     Dosage: 500 MG, TID
     Route: 048
     Dates: start: 20080128, end: 20080211
  58. PHOSLO [Concomitant]
     Dosage: 667 MG, TID
     Dates: start: 20080128, end: 20090309
  59. ZEMPLAR [Concomitant]
     Dosage: 1 MUG, 3 TIMES/WK
     Dates: start: 20080424, end: 20080612
  60. ERGOCALCIFEROL [Concomitant]
     Dosage: 50000 UNIT, QWK
     Route: 048
     Dates: start: 20080307, end: 20080421
  61. ARANESP [Suspect]
     Indication: ANAEMIA
     Dosage: 300 MUG, QWK
     Route: 058
     Dates: start: 20111114, end: 20111130
  62. EPOGEN [Suspect]
     Dosage: 1500 UNIT, 3 TIMES/WK
     Route: 042
     Dates: start: 20111130, end: 20111219
  63. EPOGEN [Suspect]
     Dosage: 18000 UNIT, 3 TIMES/WK
     Dates: start: 20090208, end: 20090305
  64. EPOGEN [Suspect]
     Dosage: 13000 UNIT, 3 TIMES/WK
     Dates: start: 20080312, end: 20080410
  65. EPOGEN [Suspect]
     Dosage: 11000 UNIT, 3 TIMES/WK
     Dates: start: 20080123, end: 20080312
  66. FERRLECIT [Concomitant]
     Dosage: 125 MG, Q3WK
     Route: 042
     Dates: start: 20111114, end: 20111129
  67. BACTRIM [Concomitant]
     Dosage: UNK
  68. HYPERTONIC SALINE SOLUTION [Concomitant]
     Dosage: 05 ML, PRN
     Route: 042
     Dates: start: 20080128
  69. OXYGEN [Concomitant]
     Dosage: 2 L, PRN
     Dates: start: 20080128, end: 20080128
  70. SODIUM CHLORIDE [Concomitant]
     Dosage: 100 UNK, PRN
     Dates: start: 20080521, end: 20110613
  71. ARANESP [Suspect]
     Dosage: 300 MUG, Q2WK
     Route: 058
     Dates: start: 20111010, end: 20111205
  72. ARANESP [Suspect]
     Dosage: UNK
     Dates: start: 20080123
  73. EPOGEN [Suspect]
     Dosage: 1500 UNIT, 3 TIMES/WK
     Dates: start: 20111219, end: 20120106
  74. EPOGEN [Suspect]
     Dosage: 15000 UNIT, 3 TIMES/WK
     Route: 042
     Dates: start: 20090113, end: 20090208
  75. EPOGEN [Suspect]
     Dosage: 18000 UNIT, 3 TIMES/WK
     Dates: start: 20081113, end: 20081204
  76. EPOGEN [Suspect]
     Dosage: 9000 UNIT, 3 TIMES/WK
     Dates: start: 20080410, end: 20080812
  77. FERRLECIT [Concomitant]
     Indication: IRON DEFICIENCY ANAEMIA
     Dosage: 125 MG, Q3WK
     Route: 042
     Dates: start: 20120106, end: 20120108
  78. FERRLECIT [Concomitant]
     Dosage: 125 MG, QWK
     Route: 042
     Dates: start: 20080131, end: 20080219
  79. BENADRYL [Concomitant]
     Dosage: 25 MG, QD
     Dates: start: 20120303
  80. VITAMIN B COMPLEX CAP [Concomitant]
     Dosage: 100 UNK, QD
     Dates: start: 20120124
  81. VENOFER [Concomitant]
     Dosage: 100 MG, QWK
     Dates: start: 20090711, end: 20091105
  82. SODIUM CHLORIDE [Concomitant]
     Dosage: 100 UNK, PRN
     Dates: start: 20080128, end: 20080521
  83. CHOLESTYRAMINE [Concomitant]
     Dosage: UNK UNK, TID
     Route: 048
     Dates: start: 20080128, end: 20080211
  84. EPINEPHRINE [Concomitant]
     Dosage: 0.25 MG, PRN
     Route: 042
     Dates: start: 20080128, end: 20080128
  85. ERGOCALCIFEROL [Concomitant]
     Dosage: 50000 UNIT, QMO
     Route: 048
     Dates: start: 20080421, end: 20090113
  86. VANCOCIN HYDROCHLORIDE [Concomitant]
     Dosage: 125 MG, UNK
     Dates: start: 20080521, end: 20080709
  87. TOBRAMYCIN SULFATE [Concomitant]
     Dosage: 157 MG, UNK
     Route: 042
     Dates: start: 20080707, end: 20080708
  88. TUBERCULIN NOS [Concomitant]
     Dosage: 0.1 UNK, UNK
     Route: 023
     Dates: start: 20081215, end: 20081216

REACTIONS (4)
  - ANTI-ERYTHROPOIETIN ANTIBODY POSITIVE [None]
  - HAEMOGLOBIN DECREASED [None]
  - INFECTION [None]
  - DRUG INEFFECTIVE [None]
